FAERS Safety Report 16467479 (Version 4)
Quarter: 2019Q3

REPORT INFORMATION
  Report Type: Spontaneous
  Country: US (occurrence: US)
  Receive Date: 20190624
  Receipt Date: 20190826
  Transmission Date: 20191004
  Serious: No
  Sender: FDA-Public Use
  Company Number: US-BIOGEN-2019BI00717467

PATIENT
  Age: 39 Year
  Sex: Female

DRUGS (2)
  1. EPIPEN [Concomitant]
     Active Substance: EPINEPHRINE
     Route: 065
  2. TYSABRI [Suspect]
     Active Substance: NATALIZUMAB
     Indication: MULTIPLE SCLEROSIS
     Route: 041
     Dates: start: 20170830, end: 20190313

REACTIONS (12)
  - Multiple sclerosis [Not Recovered/Not Resolved]
  - Pain of skin [Unknown]
  - Vomiting [Recovered/Resolved]
  - Hypersensitivity [Unknown]
  - Skin irritation [Not Recovered/Not Resolved]
  - Rash papular [Not Recovered/Not Resolved]
  - Rash [Unknown]
  - Skin tightness [Unknown]
  - Pruritus [Unknown]
  - Burning sensation [Unknown]
  - Skin discolouration [Unknown]
  - Nausea [Unknown]

NARRATIVE: CASE EVENT DATE: 2017
